FAERS Safety Report 5870505-5 (Version None)
Quarter: 2008Q3

REPORT INFORMATION
  Report Type: 
  Country: None (occurrence: None)
  Receive Date: 20080903
  Receipt Date: 20080826
  Transmission Date: 20090109
  Serious: Yes (Life-Threatening, Hospitalization)
  Sender: FDA-Public Use
  Company Number: APP200800769

PATIENT
  Age: 71 Year
  Sex: Male
  Weight: 82 kg

DRUGS (4)
  1. HEPARIN SODIUM INJECTION [Suspect]
     Indication: CATHETERISATION CARDIAC
     Dosage: SEE IMAGE
     Route: 040
     Dates: start: 20080825, end: 20080825
  2. HEPARIN SODIUM INJECTION [Suspect]
     Indication: CATHETERISATION CARDIAC
     Dosage: SEE IMAGE
     Route: 040
     Dates: start: 20080825, end: 20080825
  3. HEPARIN SODIUM INJECTION [Suspect]
     Indication: CATHETERISATION CARDIAC
     Dosage: SEE IMAGE
     Route: 040
     Dates: start: 20080825, end: 20080825
  4. EBTIFIBATIDE [Concomitant]

REACTIONS (3)
  - CATHETER THROMBOSIS [None]
  - DRUG INEFFECTIVE [None]
  - VITAL FUNCTIONS ABNORMAL [None]
